FAERS Safety Report 9229369 (Version 1)
Quarter: 2013Q2

REPORT INFORMATION
  Report Type: Spontaneous
  Country: US (occurrence: US)
  Receive Date: 20130412
  Receipt Date: 20130412
  Transmission Date: 20140414
  Serious: Yes (Hospitalization)
  Sender: FDA-Public Use
  Company Number: US-ASTELLAS-2013US000019

PATIENT
  Age: 45 Year
  Sex: Female

DRUGS (1)
  1. PROGRAF [Suspect]
     Indication: SMALL INTESTINE TRANSPLANT
     Dosage: 5 MG, UID/QD
     Route: 048
     Dates: start: 20120112

REACTIONS (2)
  - Off label use [Unknown]
  - Pneumonia [Recovering/Resolving]
